FAERS Safety Report 4896956-3 (Version None)
Quarter: 2006Q1

REPORT INFORMATION
  Report Type: 
  Country: None (occurrence: None)
  Receive Date: 20060127
  Receipt Date: 20060113
  Transmission Date: 20060701
  Serious: Yes (Other)
  Sender: FDA-Public Use
  Company Number: GB200601002195

PATIENT
  Age: 14 Year
  Sex: Male
  Weight: 70.7 kg

DRUGS (3)
  1. STRATTERA [Suspect]
     Indication: ATTENTION DEFICIT/HYPERACTIVITY DISORDER
     Dosage: 80 MG, DAILY (1/D), ORAL
     Route: 048
     Dates: start: 20051021, end: 20051209
  2. RITALIN [Concomitant]
  3. RISPERIDONE [Concomitant]

REACTIONS (1)
  - ATRIAL FLUTTER [None]
